FAERS Safety Report 22278123 (Version 1)
Quarter: 2023Q2

REPORT INFORMATION
  Report Type: Spontaneous
  Country: US (occurrence: None)
  Receive Date: 20230502
  Receipt Date: 20230502
  Transmission Date: 20230721
  Serious: No
  Sender: FDA-Public Use
  Company Number: None

PATIENT
  Age: 80 Year
  Sex: Male
  Weight: 74.12 kg

DRUGS (9)
  1. CAPECITABINE [Suspect]
     Active Substance: CAPECITABINE
     Indication: Rectosigmoid cancer
     Dosage: OTHER FREQUENCY : 2W,1WOFF;?
     Route: 048
     Dates: end: 20230502
  2. ALBUTEROL SULFATE [Concomitant]
  3. ASPIRIN EC [Concomitant]
  4. FLOMAX [Suspect]
     Active Substance: TAMSULOSIN HYDROCHLORIDE
  5. LEVOTHYROXINE [Concomitant]
  6. LINAGLIPTIN-METFORMIN [Concomitant]
  7. METAMUCIL [Concomitant]
  8. MONTELUKAST [Concomitant]
  9. SYMBICORT [Concomitant]

REACTIONS (2)
  - Surgery [None]
  - Therapy interrupted [None]
